FAERS Safety Report 22586084 (Version 1)
Quarter: 2023Q2

REPORT INFORMATION
  Report Type: Spontaneous
  Country: DE (occurrence: DE)
  Receive Date: 20230610
  Receipt Date: 20230610
  Transmission Date: 20230721
  Serious: Yes (Other)
  Sender: FDA-Public Use
  Company Number: DE-SUN PHARMACEUTICAL INDUSTRIES LTD-2023R1-393911

PATIENT
  Age: 30 Year
  Sex: Female

DRUGS (3)
  1. CLOZAPINE [Suspect]
     Active Substance: CLOZAPINE
     Indication: Antipsychotic therapy
     Dosage: UNK
     Route: 065
  2. HALOPERIDOL [Suspect]
     Active Substance: HALOPERIDOL
     Indication: Antipsychotic therapy
     Dosage: UNK
     Route: 065
  3. BENZODIAZEPINE [Concomitant]
     Active Substance: BENZODIAZEPINE
     Indication: Antipsychotic therapy
     Dosage: UNK
     Route: 065

REACTIONS (1)
  - Therapeutic response decreased [Unknown]
